FAERS Safety Report 7038220-2 (Version None)
Quarter: 2010Q4

REPORT INFORMATION
  Report Type: 
  Country: None (occurrence: None)
  Receive Date: 20101011
  Receipt Date: 20101006
  Transmission Date: 20110411
  Serious: Yes (Hospitalization)
  Sender: FDA-Public Use
  Company Number: DE-BRISTOL-MYERS SQUIBB COMPANY-15266414

PATIENT
  Age: 67 Year
  Sex: Male
  Weight: 89 kg

DRUGS (4)
  1. CETUXIMAB [Suspect]
     Indication: HEAD AND NECK CANCER
     Dosage: RECENT INF:19JUL10,NO OF INF:12,FORMULATION:5MG/ML, TEMPORARY DISCONTINUED ON 26-JUL-2010
     Route: 042
     Dates: start: 20100426
  2. CISPLATIN [Suspect]
     Indication: HEAD AND NECK CANCER
     Dosage: RECENT INF:19JUL10,NO OF INF:5
     Route: 042
     Dates: start: 20100726
  3. CILENGITIDE [Suspect]
     Indication: HEAD AND NECK CANCER
     Dosage: RECENT INF:22JUL10,NO OF INF:27, TEMPORARY DISCONTINUED ON 26-JUL-2010
     Route: 042
     Dates: start: 20100426
  4. FLUOROURACIL [Suspect]
     Indication: HEAD AND NECK CANCER
     Dosage: RECENT INF:22JUL10,NO OF INF:16,DOSAGE:CONTINOUS INF FROM DAY 1-DAY 4 OF CYCLE
     Route: 042
     Dates: start: 20100426

REACTIONS (1)
  - SYNCOPE [None]
